FAERS Safety Report 5239333-8 (Version None)
Quarter: 2007Q1

REPORT INFORMATION
  Report Type: 
  Country: None (occurrence: None)
  Receive Date: 20070216
  Receipt Date: 20070213
  Transmission Date: 20070707
  Serious: Yes (Death)
  Sender: FDA-Public Use
  Company Number: 2007UW02935

PATIENT
  Age: 66 Year
  Sex: Male

DRUGS (4)
  1. SEROQUEL [Suspect]
     Indication: MANIA
     Route: 048
  2. SEROQUEL [Suspect]
     Route: 048
     Dates: end: 20061001
  3. LEXAPRO [Concomitant]
  4. BLOOD PRESSURE MEDICATIONS [Concomitant]

REACTIONS (2)
  - COMPLETED SUICIDE [None]
  - EXTRAPYRAMIDAL DISORDER [None]
